FAERS Safety Report 24165845 (Version 1)
Quarter: 2024Q3

REPORT INFORMATION
  Report Type: Spontaneous
  Country: CO (occurrence: CO)
  Receive Date: 20240802
  Receipt Date: 20240802
  Transmission Date: 20241017
  Serious: Yes (Death, Hospitalization)
  Sender: NOVITIUM PHARMA
  Company Number: CO-NOVITIUMPHARMA-2024CONVP01453

PATIENT
  Age: 28 Year
  Sex: Female

DRUGS (4)
  1. ACYCLOVIR [Suspect]
     Active Substance: ACYCLOVIR
     Indication: Herpes virus infection
  2. ACYCLOVIR [Suspect]
     Active Substance: ACYCLOVIR
     Indication: Cytomegalovirus infection
  3. GANCICLOVIR [Concomitant]
     Active Substance: GANCICLOVIR
     Indication: Herpes virus infection
  4. GANCICLOVIR [Concomitant]
     Active Substance: GANCICLOVIR
     Indication: Cytomegalovirus infection

REACTIONS (5)
  - Haematuria [Fatal]
  - Proteinuria [Fatal]
  - Glycosuria [Fatal]
  - Kidney enlargement [Fatal]
  - Drug ineffective [Fatal]
